FAERS Safety Report 15056759 (Version 1)
Quarter: 2018Q2

REPORT INFORMATION
  Report Type: Spontaneous
  Country: US (occurrence: US)
  Receive Date: 20180604
  Receipt Date: 20180604
  Transmission Date: 20180711
  Serious: Yes (Life-Threatening, Hospitalization, Disabling)
  Sender: FDA-Public Use
  Company Number: None

PATIENT
  Age: 68 Year
  Sex: Male
  Weight: 103.5 kg

DRUGS (15)
  1. ENTRESTO [Concomitant]
     Active Substance: SACUBITRIL\VALSARTAN
  2. CARVEDILOL. [Concomitant]
     Active Substance: CARVEDILOL
  3. HUMALOG [Concomitant]
     Active Substance: INSULIN LISPRO
  4. TYLENOL PM [Concomitant]
     Active Substance: ACETAMINOPHEN\DIPHENHYDRAMINE
  5. ELEQUIST [Concomitant]
  6. SOMNAPURE [Concomitant]
  7. BRILINTA [Concomitant]
     Active Substance: TICAGRELOR
  8. GABAPENTIN. [Concomitant]
     Active Substance: GABAPENTIN
  9. FLOMAX [Concomitant]
     Active Substance: TAMSULOSIN HYDROCHLORIDE
  10. AMIODERONE [Concomitant]
  11. LANTUS [Concomitant]
     Active Substance: INSULIN GLARGINE
  12. EPLERENONE. [Concomitant]
     Active Substance: EPLERENONE
  13. OMEPRAZOLE. [Concomitant]
     Active Substance: OMEPRAZOLE
  14. HYDROXYUREA. [Suspect]
     Active Substance: HYDROXYUREA
     Indication: POLYCYTHAEMIA VERA
     Dosage: ?          QUANTITY:1 DF DOSAGE FORM;?
     Route: 048
     Dates: start: 20180522, end: 20180526
  15. ATORVASTATIN [Concomitant]
     Active Substance: ATORVASTATIN

REACTIONS (13)
  - Pyrexia [None]
  - Hepatic failure [None]
  - Sepsis [None]
  - Dysstasia [None]
  - Dehydration [None]
  - Asthenia [None]
  - Hypotension [None]
  - Disorientation [None]
  - Atrial fibrillation [None]
  - Myocardial infarction [None]
  - Cardiac failure [None]
  - Gait disturbance [None]
  - Chills [None]

NARRATIVE: CASE EVENT DATE: 20180522
